FAERS Safety Report 8308654-4 (Version None)
Quarter: 2012Q2

REPORT INFORMATION
  Report Type: 
  Country: None (occurrence: None)
  Receive Date: 20120421
  Receipt Date: 20120421
  Transmission Date: 20120825
  Serious: No
  Sender: FDA-Public Use
  Company Number: None

PATIENT
  Sex: Male

DRUGS (2)
  1. ZELBORAF [Suspect]
     Indication: MALIGNANT MELANOMA
     Dosage: 4 X 240MG=960 BID ORAL  : 720MG / 480 MG BID ORAL
     Route: 048
     Dates: start: 20120323, end: 20120401
  2. ZELBORAF [Suspect]
     Indication: MALIGNANT MELANOMA
     Dosage: 4 X 240MG=960 BID ORAL  : 720MG / 480 MG BID ORAL
     Route: 048
     Dates: start: 20120111, end: 20120211

REACTIONS (8)
  - ERYTHEMA [None]
  - PAIN IN EXTREMITY [None]
  - HYPERKERATOSIS [None]
  - SKIN ULCER [None]
  - GANGRENE [None]
  - FACE OEDEMA [None]
  - SCAB [None]
  - GAIT DISTURBANCE [None]
